FAERS Safety Report 10732751 (Version 1)
Quarter: 2015Q1

REPORT INFORMATION
  Report Type: Spontaneous
  Country: FR (occurrence: FR)
  Receive Date: 20150123
  Receipt Date: 20150123
  Transmission Date: 20150721
  Serious: Yes (Hospitalization)
  Sender: FDA-Public Use
  Company Number: FR-EMD SERONO-8005044

PATIENT
  Age: 27 Year
  Sex: Female

DRUGS (5)
  1. DECAPEPTYL [Suspect]
     Active Substance: TRIPTORELIN ACETATE
     Route: 058
     Dates: start: 20140524, end: 20140604
  2. DECAPEPTYL [Suspect]
     Active Substance: TRIPTORELIN ACETATE
     Indication: OVULATION INDUCTION
     Route: 058
     Dates: start: 20140405, end: 20140405
  3. DECAPEPTYL [Suspect]
     Active Substance: TRIPTORELIN ACETATE
     Route: 058
     Dates: start: 20140514, end: 20140521
  4. MENOPUR [Suspect]
     Active Substance: FOLLICLE STIMULATING HORMONE BETA POLYPEPTIDE\LUTROPIN ALFA
     Indication: OVULATION INDUCTION
     Dates: start: 20140524, end: 20140604
  5. OVITRELLE [Suspect]
     Active Substance: CHORIOGONADOTROPIN ALFA
     Indication: OVULATION INDUCTION
     Dates: start: 20140605, end: 20140605

REACTIONS (4)
  - Ascites [Recovered/Resolved]
  - Ovarian hyperstimulation syndrome [Recovered/Resolved]
  - Supraventricular tachycardia [Recovered/Resolved]
  - Human chorionic gonadotropin increased [Recovered/Resolved]

NARRATIVE: CASE EVENT DATE: 20140625
